FAERS Safety Report 7591982-8 (Version None)
Quarter: 2011Q2

REPORT INFORMATION
  Report Type: 
  Country: None (occurrence: None)
  Receive Date: 20110627
  Receipt Date: 20110613
  Transmission Date: 20111010
  Serious: Yes (Other)
  Sender: FDA-Public Use
  Company Number: 2011MA007153

PATIENT
  Age: 59 Year
  Sex: Female

DRUGS (1)
  1. PAREGORIC LIQUID USP (ALPHARMA) (PAREGORIC) [Suspect]
     Indication: PAIN
     Dosage: 28.5 MG, QD, INTH
     Route: 037

REACTIONS (2)
  - RAPID EYE MOVEMENTS SLEEP ABNORMAL [None]
  - HYPERSOMNIA [None]
